FAERS Safety Report 5235033-9 (Version None)
Quarter: 2007Q1

REPORT INFORMATION
  Report Type: 
  Country: None (occurrence: None)
  Receive Date: 20070207
  Receipt Date: 20070130
  Transmission Date: 20070707
  Serious: Yes (Hospitalization)
  Sender: FDA-Public Use
  Company Number: 163-21880-07010070

PATIENT
  Age: 69 Year
  Sex: Male

DRUGS (10)
  1. REVLIMID [Suspect]
     Indication: MULTIPLE MYELOMA
     Dosage: 25 MG, 1 IN 1 D, ORAL
     Route: 048
     Dates: start: 20060801, end: 20061215
  2. SYNTHROID [Concomitant]
  3. PLAVIX [Concomitant]
  4. SOTALOL HCL [Concomitant]
  5. POTASSIUM (POTASSIUM) [Concomitant]
  6. GABAPENTIN [Concomitant]
  7. ARANESP [Concomitant]
  8. CARAFATE [Concomitant]
  9. NEXIUM [Concomitant]
  10. IRON (IRON) [Concomitant]

REACTIONS (2)
  - ULCER HAEMORRHAGE [None]
  - UPPER GASTROINTESTINAL HAEMORRHAGE [None]
